FAERS Safety Report 7538024-8 (Version None)
Quarter: 2011Q2

REPORT INFORMATION
  Report Type: 
  Country: None (occurrence: None)
  Receive Date: 20110609
  Receipt Date: 20110607
  Transmission Date: 20111010
  Serious: Yes (Life-Threatening, Hospitalization)
  Sender: FDA-Public Use
  Company Number: PHHO2011GB06766

PATIENT
  Sex: Female

DRUGS (22)
  1. DEXAMETHASONE [Concomitant]
     Dosage: UNK
     Route: 048
     Dates: end: 20110531
  2. MORPHINE [Concomitant]
  3. DAUNORUBICIN HCL [Concomitant]
     Route: 042
  4. POTASSIUM CHLORIDE [Concomitant]
  5. CYTARABINE [Concomitant]
  6. RANITIDINE [Concomitant]
  7. TPN [Concomitant]
  8. VINDESINE [Concomitant]
     Route: 042
  9. IFOSFAMIDE [Concomitant]
     Route: 042
  10. ONCASPAR [Concomitant]
     Route: 030
  11. GLEEVEC [Suspect]
     Indication: ACUTE LYMPHOCYTIC LEUKAEMIA
     Dosage: UNK
     Route: 048
     Dates: end: 20110415
  12. GELCLAIR [Concomitant]
  13. GLEEVEC [Suspect]
     Dosage: UNK
     Route: 048
     Dates: start: 20110527
  14. LEUCOVORIN CALCIUM [Concomitant]
     Route: 042
  15. PREDNISOLONE [Concomitant]
  16. CETIRIZINE HCL [Concomitant]
  17. SCOPOLAMINE [Concomitant]
  18. METHOTREXATE [Concomitant]
     Route: 042
  19. ONDANSETRON [Concomitant]
  20. SUCRALFATE [Concomitant]
  21. MAGNESIUM GLYCEROPHOSPHATE [Concomitant]
  22. ACYCLOVIR [Concomitant]

REACTIONS (5)
  - SEPSIS [None]
  - NEUTROPENIA [None]
  - SEPTIC SHOCK [None]
  - MUCOSAL INFLAMMATION [None]
  - GASTROINTESTINAL HAEMORRHAGE [None]
